FAERS Safety Report 19030401 (Version 1)
Quarter: 2021Q1

REPORT INFORMATION
  Report Type: Spontaneous
  Country: FR (occurrence: FR)
  Receive Date: 20210319
  Receipt Date: 20210319
  Transmission Date: 20210420
  Serious: Yes (Death, Other)
  Sender: FDA-Public Use
  Company Number: FR-PFIZER INC-2021253204

PATIENT
  Age: 6 Decade
  Sex: Male

DRUGS (3)
  1. RALTITREXED [Concomitant]
     Active Substance: RALTITREXED
     Indication: ADENOCARCINOMA OF COLON
     Dosage: 3 MG/M2, CYCLIC, EVERY 3 WEEKS FOR A TOTAL OF SIX CYCLES
     Route: 042
     Dates: start: 2016, end: 201703
  2. IRINOTECAN [Concomitant]
     Active Substance: IRINOTECAN
     Indication: ADENOCARCINOMA OF COLON
     Dosage: 180 MG/M2, CYCLIC, EVERY 3 WEEKS FOR A TOTAL OF SIX CYCLES
     Route: 042
     Dates: start: 2016, end: 201703
  3. OXALIPLATIN. [Suspect]
     Active Substance: OXALIPLATIN
     Indication: ADENOCARCINOMA OF COLON
     Dosage: 100 MG/M2, CYCLIC, EVERY 3 WEEKS, STOPPED AFTER THE FOURTH CYCLE
     Route: 042
     Dates: start: 2016, end: 201703

REACTIONS (1)
  - Neuropathy peripheral [Unknown]
